FAERS Safety Report 11392726 (Version 3)
Quarter: 2015Q3

REPORT INFORMATION
  Report Type: Spontaneous
  Country: US (occurrence: US)
  Receive Date: 20150818
  Receipt Date: 20150921
  Transmission Date: 20151125
  Serious: Yes (Hospitalization, Other)
  Sender: FDA-Public Use
  Company Number: US-APOTEX-2015AP011263

PATIENT
  Sex: Male

DRUGS (1)
  1. CYCLOSPORINE. [Suspect]
     Active Substance: CYCLOSPORINE
     Indication: PRODUCT USED FOR UNKNOWN INDICATION
     Dosage: 3 TO 4 TWICE A DAY (75 MG OR 100 MG)
     Route: 065
     Dates: start: 201402

REACTIONS (5)
  - Hypertension [Unknown]
  - Product quality issue [Unknown]
  - Product substitution issue [Unknown]
  - Renal failure [Unknown]
  - Toxicity to various agents [Unknown]
